FAERS Safety Report 4344691-2 (Version None)
Quarter: 2004Q2

REPORT INFORMATION
  Report Type: 
  Country: None (occurrence: None)
  Receive Date: 20040419
  Receipt Date: 20030819
  Transmission Date: 20050107
  Serious: Yes (Death, Hospitalization)
  Sender: FDA-Public Use
  Company Number: 03R-028-0225488-00

PATIENT

DRUGS (2)
  1. PEDIAZOLE [Suspect]
  2. ERYTHROMYCIN [Suspect]

REACTIONS (5)
  - ABDOMINAL PAIN [None]
  - HAEMOLYSIS [None]
  - IMMUNE SYSTEM DISORDER [None]
  - OESOPHAGEAL PAIN [None]
  - PARAESTHESIA ORAL [None]
